FAERS Safety Report 18056630 (Version 2)
Quarter: 2020Q3

REPORT INFORMATION
  Report Type: Spontaneous
  Country: IN (occurrence: IN)
  Receive Date: 20200722
  Receipt Date: 20200907
  Transmission Date: 20201103
  Serious: Yes (Other)
  Sender: FDA-Public Use
  Company Number: IN-PFIZER INC-2019548725

PATIENT
  Age: 49 Year
  Sex: Male

DRUGS (10)
  1. HALOVATE F [Concomitant]
     Dosage: UNK
  2. CALCIMAX 500 [Concomitant]
     Dosage: 500 MG, 1X/DAY (AFTER FOOD?DAILY?1 MONTH)
  3. SUTENT [Suspect]
     Active Substance: SUNITINIB MALATE
     Indication: METASTATIC RENAL CELL CARCINOMA
     Dosage: 25 MG, CYCLIC (ONCE A DAY, 2 WEEKS ON AND 1 WEEK OFF)
     Route: 048
     Dates: start: 20191224
  4. SUTENT [Suspect]
     Active Substance: SUNITINIB MALATE
     Dosage: 50 MG, CYCLIC (2 WEEKS ON 1 WEEK OFF)
  5. SUTENT [Suspect]
     Active Substance: SUNITINIB MALATE
     Indication: GASTROINTESTINAL STROMAL TUMOUR
     Dosage: 37.5 MG
     Route: 048
  6. UPRISE D3 [Concomitant]
     Dosage: 1 DF, CYCLIC (1 TAB ONCE IN 2 WEEKS, AFTER FOOD?MONTHLY?1 MONTH)
  7. FOLVITE [Concomitant]
     Active Substance: FOLIC ACID
     Dosage: 5 MG, 1X/DAY (AFTER FOOD?DAILY?1 MONTH)
  8. PAN [Concomitant]
     Dosage: UNK, 1X/DAY (40, BEFORE FOOD?DAILY?21 DAYS)
  9. DEXONA [Concomitant]
     Active Substance: DEXAMETHASONE
     Dosage: 4 MG, 3X/DAY (AFTER FOOD?DAILY?21 DAYS)
  10. BETADINE [Concomitant]
     Active Substance: POVIDONE-IODINE
     Dosage: UNK, 3X/DAY

REACTIONS (5)
  - Platelet count increased [Unknown]
  - White blood cell count decreased [Unknown]
  - Arthralgia [Unknown]
  - Haemoglobin decreased [Unknown]
  - Back pain [Unknown]
